FAERS Safety Report 7424687-4 (Version None)
Quarter: 2011Q2

REPORT INFORMATION
  Report Type: 
  Country: None (occurrence: None)
  Receive Date: 20110419
  Receipt Date: 20110412
  Transmission Date: 20111010
  Serious: Yes (Death, Hospitalization)
  Sender: FDA-Public Use
  Company Number: IT-AMGEN-ITACT2011019492

PATIENT
  Age: 70 Year
  Sex: Male
  Weight: 61 kg

DRUGS (8)
  1. FLUOROURACIL [Concomitant]
     Dosage: 40000 MG, UNK
     Dates: start: 20110112, end: 20110304
  2. LANSOPRAZOLE [Concomitant]
     Dosage: 30 MG, QD
     Route: 048
     Dates: start: 20110112, end: 20110310
  3. DEXAMETHASONE [Concomitant]
     Dosage: 4 MG, QD
     Route: 048
     Dates: start: 20110302, end: 20110308
  4. FUROSEMIDE [Concomitant]
     Dosage: 25 MG, UNK
     Route: 048
     Dates: start: 20110302, end: 20110310
  5. IRINOTECAN [Concomitant]
     Dosage: 190 MG, UNK
     Dates: start: 20110112, end: 20110304
  6. LEUCOVORIN CALCIUM [Concomitant]
     Dosage: 338 MG, UNK
     Dates: start: 20110112, end: 20110304
  7. PANITUMUMAB [Suspect]
     Indication: COLORECTAL CANCER METASTATIC
     Dosage: 366 MG, UNK
     Dates: start: 20110112, end: 20110304
  8. OXALIPLATIN [Concomitant]
     Dosage: 110 MG, UNK
     Dates: start: 20110112, end: 20110304

REACTIONS (2)
  - FEBRILE NEUTROPENIA [None]
  - DYSPNOEA [None]
